FAERS Safety Report 13159085 (Version 1)
Quarter: 2017Q1

REPORT INFORMATION
  Report Type: Spontaneous
  Country: US (occurrence: US)
  Receive Date: 20170127
  Receipt Date: 20170127
  Transmission Date: 20170428
  Serious: No
  Sender: FDA-Public Use
  Company Number: US-GLAXOSMITHKLINE-US2017009712

PATIENT
  Age: 77 Year
  Sex: Female

DRUGS (1)
  1. ABREVA [Suspect]
     Active Substance: DOCOSANOL
     Indication: ORAL HERPES
     Dosage: UNK
     Dates: start: 20170118, end: 20170120

REACTIONS (3)
  - Oral discomfort [Not Recovered/Not Resolved]
  - Lip discolouration [Not Recovered/Not Resolved]
  - Burning sensation [Unknown]

NARRATIVE: CASE EVENT DATE: 20170119
